FAERS Safety Report 7756614-4 (Version None)
Quarter: 2011Q3

REPORT INFORMATION
  Report Type: 
  Country: None (occurrence: None)
  Receive Date: 20110916
  Receipt Date: 20110912
  Transmission Date: 20111222
  Serious: Yes (Hospitalization, Other)
  Sender: FDA-Public Use
  Company Number: PHHY2011MX81089

PATIENT
  Sex: Female

DRUGS (2)
  1. TRILEPTAL [Suspect]
     Dosage: 1 TAB. (300MG) DAILY
     Route: 048
     Dates: start: 20110802
  2. TRILEPTAL [Suspect]
     Indication: EPILEPSY
     Dosage: 0.5 TAB  (300 MG) DAILY
     Route: 048
     Dates: start: 20110712

REACTIONS (2)
  - FALL [None]
  - FEMUR FRACTURE [None]
